FAERS Safety Report 8340851-4 (Version None)
Quarter: 2012Q2

REPORT INFORMATION
  Report Type: 
  Country: None (occurrence: None)
  Receive Date: 20120507
  Receipt Date: 20120430
  Transmission Date: 20120825
  Serious: Yes (Hospitalization)
  Sender: FDA-Public Use
  Company Number: US-ROCHE-1064666

PATIENT
  Sex: Female
  Weight: 106.24 kg

DRUGS (1)
  1. XELODA [Suspect]
     Indication: BREAST CANCER METASTATIC
     Route: 048
     Dates: start: 20120301, end: 20120301

REACTIONS (3)
  - CATHETER SITE ERYTHEMA [None]
  - WHITE BLOOD CELL COUNT DECREASED [None]
  - DEVICE RELATED INFECTION [None]
